FAERS Safety Report 13375284 (Version 1)
Quarter: 2017Q1

REPORT INFORMATION
  Report Type: Report from Study
  Country: FR (occurrence: FR)
  Receive Date: 20170327
  Receipt Date: 20170327
  Transmission Date: 20170429
  Serious: Yes (Other)
  Sender: FDA-Public Use
  Company Number: FR-BAXALTA-2017BLT002383

PATIENT
  Age: 5 Year
  Sex: Male
  Weight: 15 kg

DRUGS (11)
  1. ONCASPAR [Suspect]
     Active Substance: PEGASPARGASE
     Indication: ACUTE LYMPHOCYTIC LEUKAEMIA
     Dosage: 840 IU, 1 DAY
     Route: 042
     Dates: start: 20170220, end: 20170220
  2. DEXAMETHASONE. [Suspect]
     Active Substance: DEXAMETHASONE
     Indication: ACUTE LYMPHOCYTIC LEUKAEMIA
     Dosage: 4 MG, 1X A DAY
     Route: 048
     Dates: start: 20170209
  3. METHOTREXATE. [Suspect]
     Active Substance: METHOTREXATE
     Dosage: 12 MG, 1X A DAY
     Route: 037
     Dates: start: 20170304, end: 20170304
  4. ONCASPAR [Suspect]
     Active Substance: PEGASPARGASE
     Dosage: 840 IU, 1 DAY
     Route: 042
     Dates: start: 20170306, end: 20170306
  5. VINCRISTINE [Suspect]
     Active Substance: VINCRISTINE
     Indication: ACUTE LYMPHOCYTIC LEUKAEMIA
     Dosage: 1 MG, 1X A DAY
     Route: 042
     Dates: start: 20170216, end: 20170216
  6. VINCRISTINE [Suspect]
     Active Substance: VINCRISTINE
     Dosage: 1 MG, 1X A DAY
     Route: 042
     Dates: start: 20170223, end: 20170223
  7. VINCRISTINE [Suspect]
     Active Substance: VINCRISTINE
     Dosage: 1 MG, 1X A DAY
     Route: 042
     Dates: start: 20170302, end: 20170302
  8. METHOTREXATE. [Suspect]
     Active Substance: METHOTREXATE
     Indication: ACUTE LYMPHOCYTIC LEUKAEMIA
     Dosage: 12 MG, 1X A DAY
     Route: 037
     Dates: start: 20170209, end: 20170209
  9. METHOTREXATE. [Suspect]
     Active Substance: METHOTREXATE
     Dosage: 12 MG, 1X A DAY
     Route: 037
     Dates: start: 20170221, end: 20170221
  10. VINCRISTINE [Suspect]
     Active Substance: VINCRISTINE
     Dosage: 1 MG, 1X A DAY
     Route: 042
     Dates: start: 20170309
  11. METHOTREXATE. [Suspect]
     Active Substance: METHOTREXATE
     Dosage: 12 MG, 1X A DAY
     Route: 037
     Dates: start: 20170217, end: 20170217

REACTIONS (1)
  - Mucosal inflammation [Recovered/Resolved]

NARRATIVE: CASE EVENT DATE: 20170309
